FAERS Safety Report 19165916 (Version 3)
Quarter: 2021Q3

REPORT INFORMATION
  Report Type: Spontaneous
  Country: US (occurrence: US)
  Receive Date: 20210422
  Receipt Date: 20210915
  Transmission Date: 20211014
  Serious: Yes (Other)
  Sender: FDA-Public Use
  Company Number: US-TEVA-2021-US-1903047

PATIENT
  Age: 49 Year
  Sex: Female

DRUGS (5)
  1. VALSARTAN ACTAVIS [Suspect]
     Active Substance: VALSARTAN
     Route: 065
  2. VALSARTAN W/HYDROCHLOROTHIAZIDE ACTAVIS [Suspect]
     Active Substance: HYDROCHLOROTHIAZIDE\VALSARTAN
     Route: 065
  3. VALSARTAN SOLCO [Suspect]
     Active Substance: VALSARTAN
     Route: 065
  4. VALSARTAN W/HYDROCHLOROTHIAZIDE SOLCO [Suspect]
     Active Substance: HYDROCHLOROTHIAZIDE\VALSARTAN
     Route: 065
  5. VITAMINS [Concomitant]
     Active Substance: VITAMINS
     Route: 065

REACTIONS (5)
  - Breast cancer stage IV [Unknown]
  - Hepatic cancer stage IV [Unknown]
  - Malignant joint neoplasm [Unknown]
  - Bone cancer [Unknown]
  - Metastasis [Unknown]
